FAERS Safety Report 21329405 (Version 1)
Quarter: 2022Q3

REPORT INFORMATION
  Report Type: Spontaneous
  Country: FR (occurrence: FR)
  Receive Date: 20220913
  Receipt Date: 20220913
  Transmission Date: 20221027
  Serious: Yes (Other)
  Sender: FDA-Public Use
  Company Number: None

PATIENT
  Age: 59 Year
  Sex: Female
  Weight: 59 kg

DRUGS (4)
  1. RAMIPRIL [Suspect]
     Active Substance: RAMIPRIL
     Indication: Hypertension
  2. TROPICAMIDE [Suspect]
     Active Substance: TROPICAMIDE
     Indication: Ophthalmological examination
     Dosage: 2MG/0.4ML,  IN A SINGLE-DOSE CONTAINER
     Dates: start: 20220608, end: 20220608
  3. NEOSYNEPHRINE [Suspect]
     Active Substance: PHENYLEPHRINE HYDROCHLORIDE
     Indication: Ophthalmological examination
     Dosage: 2.5%  FAURE, EYE DROPS IN SOLUTION IN A SINGLE-DOSE CONTAINER
     Dates: start: 20220608, end: 20220608
  4. BENOXINATE HYDROCHLORIDE [Suspect]
     Active Substance: BENOXINATE HYDROCHLORIDE
     Indication: Ophthalmological examination
     Dosage: 1.6 MG / 0.4 ML, EYE DROPS IN SINGLE-DOSE CONTAINERS
     Dates: start: 20220608, end: 20220608

REACTIONS (3)
  - Erythema [Recovering/Resolving]
  - Face oedema [Recovering/Resolving]
  - Vertigo [Recovering/Resolving]

NARRATIVE: CASE EVENT DATE: 20220608
